FAERS Safety Report 8397879-8 (Version None)
Quarter: 2012Q2

REPORT INFORMATION
  Report Type: 
  Country: None (occurrence: None)
  Receive Date: 20120531
  Receipt Date: 20120529
  Transmission Date: 20120825
  Serious: No
  Sender: FDA-Public Use
  Company Number: PHEH2012US010950

PATIENT
  Age: 80 Year

DRUGS (2)
  1. AMIODARONE HCL [Concomitant]
  2. TASIGNA [Suspect]
     Indication: CHRONIC MYELOID LEUKAEMIA

REACTIONS (3)
  - DYSPNOEA [None]
  - HYPERHIDROSIS [None]
  - CHEST PAIN [None]
